FAERS Safety Report 12737964 (Version 2)
Quarter: 2016Q3

REPORT INFORMATION
  Report Type: Report from Study
  Country: RU (occurrence: RU)
  Receive Date: 20160913
  Receipt Date: 20160928
  Transmission Date: 20161109
  Serious: Yes (Hospitalization)
  Sender: FDA-Public Use
  Company Number: RU-SA-2016SA164006

PATIENT
  Age: 53 Year
  Sex: Female
  Weight: 57 kg

DRUGS (3)
  1. TAXOTERE [Suspect]
     Active Substance: DOCETAXEL
     Indication: BREAST CANCER
     Dosage: EVRY 21 DAYS
     Route: 042
     Dates: start: 20150610, end: 20150929
  2. CARBOPLATIN. [Concomitant]
     Active Substance: CARBOPLATIN
     Indication: BREAST CANCER
     Dosage: FREQUENCY: EVERY 21 DAYS
     Dates: start: 20150610, end: 20150929
  3. INVESTIGATIONAL DRUG [Suspect]
     Active Substance: INVESTIGATIONAL PRODUCT
     Indication: BREAST CANCER
     Dosage: EVERY 21 DAYS?POWDER FOR SOLUTION FOR INFUSION
     Route: 042
     Dates: start: 20150610, end: 20150929

REACTIONS (1)
  - Proctitis [Recovered/Resolved]

NARRATIVE: CASE EVENT DATE: 20151015
